FAERS Safety Report 11855077 (Version 1)
Quarter: 2015Q4

REPORT INFORMATION
  Report Type: Spontaneous
  Country: US (occurrence: US)
  Receive Date: 20151221
  Receipt Date: 20151221
  Transmission Date: 20160305
  Serious: No
  Sender: FDA-Public Use
  Company Number: US-AMGEN-USASP2015134017

PATIENT
  Age: 57 Year
  Sex: Female
  Weight: 125 kg

DRUGS (1)
  1. ENBREL [Suspect]
     Active Substance: ETANERCEPT
     Indication: RHEUMATOID ARTHRITIS
     Dosage: 50 MG, QWK
     Route: 058
     Dates: start: 201507

REACTIONS (3)
  - Injection site pain [Unknown]
  - Injection site discolouration [Unknown]
  - Injection site bruising [Unknown]

NARRATIVE: CASE EVENT DATE: 201510
